FAERS Safety Report 26119651 (Version 1)
Quarter: 2025Q4

REPORT INFORMATION
  Report Type: Spontaneous
  Country: JP (occurrence: JP)
  Receive Date: 20251204
  Receipt Date: 20251204
  Transmission Date: 20260118
  Serious: Yes (Hospitalization)
  Sender: MERCK SHARP & DOHME LLC
  Company Number: JP-009507513-2357161

PATIENT
  Age: 54 Year
  Sex: Female
  Weight: 53 kg

DRUGS (10)
  1. KEYTRUDA [Suspect]
     Active Substance: PEMBROLIZUMAB
     Indication: Gallbladder cancer
     Route: 041
     Dates: start: 20250708, end: 20250801
  2. CALONAL [Suspect]
     Active Substance: ACETAMINOPHEN
     Indication: Cancer pain
     Dosage: TIME INTERVAL: AS NECESSARY
     Route: 048
     Dates: start: 20250620, end: 20250703
  3. ALOXI I.V.infusion bag [Concomitant]
     Dates: start: 20250708
  4. Gemcitabine for I.V.Infusion [Concomitant]
     Indication: Gallbladder cancer
     Dates: start: 20250708
  5. CISPLATIN [Concomitant]
     Active Substance: CISPLATIN
     Indication: Gallbladder cancer
     Dates: start: 20250708
  6. VONOPRAZAN FUMARATE [Concomitant]
     Active Substance: VONOPRAZAN FUMARATE
     Route: 048
     Dates: start: 20250623
  7. NAIXAN Tablets [Concomitant]
     Route: 048
     Dates: start: 20250707, end: 20250913
  8. CALONAL [Concomitant]
     Active Substance: ACETAMINOPHEN
     Route: 048
     Dates: start: 20250620, end: 20250703
  9. CELECOXIB [Concomitant]
     Active Substance: CELECOXIB
     Route: 048
     Dates: start: 20250627, end: 20250708
  10. DEXAMETHASONE SODIUM PHOSPHATE [Concomitant]
     Active Substance: DEXAMETHASONE SODIUM PHOSPHATE
     Dates: start: 20250708

REACTIONS (1)
  - Immune-mediated hepatic disorder [Recovering/Resolving]

NARRATIVE: CASE EVENT DATE: 20250822
